FAERS Safety Report 4282048-3 (Version None)
Quarter: 2004Q1

REPORT INFORMATION
  Report Type: 
  Country: None (occurrence: None)
  Receive Date: 20040130
  Receipt Date: 20040120
  Transmission Date: 20041129
  Serious: Yes (Other)
  Sender: FDA-Public Use
  Company Number: GB-BRISTOL-MYERS SQUIBB COMPANY-12482998

PATIENT
  Age: 65 Year
  Sex: Female

DRUGS (3)
  1. PACLITAXEL [Suspect]
     Dosage: TRIAL ARM #1
     Route: 042
  2. CARBOPLATIN [Suspect]
     Dosage: TRIAL ARM #1
     Route: 042
  3. TOPOTECAN [Suspect]
     Dosage: TRIAL ARM #1
     Route: 042

REACTIONS (1)
  - PLEURAL EFFUSION [None]
